FAERS Safety Report 7902089-1 (Version None)
Quarter: 2011Q4

REPORT INFORMATION
  Report Type: 
  Country: None (occurrence: None)
  Receive Date: 20111107
  Receipt Date: 20111107
  Transmission Date: 20120403
  Serious: Yes (Hospitalization)
  Sender: FDA-Public Use
  Company Number: None

PATIENT
  Age: 56 Year
  Sex: Male
  Weight: 79.6 kg

DRUGS (1)
  1. CEFEPIME [Suspect]
     Indication: OSTEOMYELITIS
     Dosage: 2 GM, EVERY DAY, IV
     Route: 042
     Dates: start: 20110317, end: 20110327

REACTIONS (1)
  - MANIA [None]
